FAERS Safety Report 7263339-0 (Version None)
Quarter: 2011Q1

REPORT INFORMATION
  Report Type: 
  Country: None (occurrence: None)
  Receive Date: 20110130
  Receipt Date: 20100921
  Transmission Date: 20110831
  Serious: No
  Sender: FDA-Public Use
  Company Number: US-ABBOTT-10P-163-0673441-00

PATIENT
  Sex: Female
  Weight: 64.922 kg

DRUGS (12)
  1. PRAVASTATIN [Concomitant]
     Indication: BLOOD CHOLESTEROL INCREASED
  2. NOVASTATIN [Concomitant]
     Indication: BLOOD CHOLESTEROL INCREASED
     Route: 048
  3. MULTIPLE SUPPLEMENTS [Concomitant]
     Indication: PRODUCT USED FOR UNKNOWN INDICATION
  4. CATAPRES [Concomitant]
     Indication: HOT FLUSH
     Route: 048
  5. CLARITIN [Concomitant]
     Indication: HYPERSENSITIVITY
  6. METHOTREXATE [Concomitant]
     Indication: RHEUMATOID ARTHRITIS
  7. DARVOCET-N 100 [Concomitant]
     Indication: PAIN
  8. HUMIRA [Suspect]
     Indication: RHEUMATOID ARTHRITIS
     Dates: start: 20100629, end: 20100913
  9. DARVOCET-N 100 [Concomitant]
     Indication: RHEUMATOID ARTHRITIS
  10. MULTIPLE VITAMINS [Concomitant]
     Indication: PRODUCT USED FOR UNKNOWN INDICATION
  11. MUCINEX [Concomitant]
     Indication: HYPERSENSITIVITY
  12. CALCIUM [Concomitant]
     Indication: MINERAL SUPPLEMENTATION

REACTIONS (5)
  - DIARRHOEA [None]
  - PYREXIA [None]
  - DRUG DOSE OMISSION [None]
  - TOOTH FRACTURE [None]
  - ABDOMINAL PAIN UPPER [None]
